FAERS Safety Report 6240745-4 (Version None)
Quarter: 2009Q2

REPORT INFORMATION
  Report Type: 
  Country: None (occurrence: None)
  Receive Date: 20090623
  Receipt Date: 20090610
  Transmission Date: 20091009
  Serious: Yes (Hospitalization, Other)
  Sender: FDA-Public Use
  Company Number: ES-ELI_LILLY_AND_COMPANY-ES200906002841

PATIENT
  Age: 84 Year
  Sex: Female

DRUGS (3)
  1. FORTEO [Suspect]
     Indication: OSTEOPOROSIS
     Dosage: 20 UG, UNK
     Route: 058
     Dates: start: 20090601, end: 20090606
  2. MASDIL [Concomitant]
  3. ADIRO [Concomitant]

REACTIONS (3)
  - DYSPNOEA [None]
  - MYOCARDIAL OEDEMA [None]
  - PULMONARY OEDEMA [None]
